FAERS Safety Report 11175005 (Version 1)
Quarter: 2015Q2

REPORT INFORMATION
  Report Type: Spontaneous
  Country: US (occurrence: US)
  Receive Date: 20150609
  Receipt Date: 20150609
  Transmission Date: 20150821
  Serious: No
  Sender: FDA-Public Use
  Company Number: US-PFIZER INC-2015188453

PATIENT
  Age: 37 Year
  Sex: Male
  Weight: 69.84 kg

DRUGS (1)
  1. VIAGRA [Suspect]
     Active Substance: SILDENAFIL CITRATE
     Indication: SEXUAL DYSFUNCTION
     Dosage: UNK (4, 5 OR 6 TIMES)
     Dates: end: 20150529

REACTIONS (4)
  - Intentional product misuse [Unknown]
  - Penis disorder [Unknown]
  - Drug ineffective [Unknown]
  - Testicular disorder [Unknown]

NARRATIVE: CASE EVENT DATE: 2015
